FAERS Safety Report 5499096-8 (Version None)
Quarter: 2007Q4

REPORT INFORMATION
  Report Type: 
  Country: None (occurrence: None)
  Receive Date: 20071026
  Receipt Date: 20070530
  Transmission Date: 20080405
  Serious: No
  Sender: FDA-Public Use
  Company Number: A0653498A

PATIENT
  Age: 38 Year
  Sex: Female

DRUGS (11)
  1. ADVAIR DISKUS 100/50 [Suspect]
     Indication: ASTHMA
     Dosage: 1PUFF TWICE PER DAY
     Route: 055
     Dates: start: 20070228, end: 20070525
  2. ALLERGY INJECTION [Suspect]
     Dosage: 1INJ WEEKLY
     Route: 030
     Dates: start: 20070403
  3. RHINOCORT [Suspect]
     Indication: MULTIPLE ALLERGIES
     Dosage: 1SPR TWICE PER DAY
     Route: 045
     Dates: start: 20070228, end: 20070525
  4. SYNTHROID [Concomitant]
  5. WELLBUTRIN XL [Concomitant]
  6. KLONOPIN [Concomitant]
  7. ZOLOFT [Concomitant]
  8. AXID [Concomitant]
  9. ACIPHEX [Concomitant]
  10. RHINOCORT [Concomitant]
  11. ALLEGRA D 24 HOUR [Concomitant]

REACTIONS (2)
  - PRURITUS [None]
  - RASH [None]
